FAERS Safety Report 4629631-0 (Version None)
Quarter: 2005Q2

REPORT INFORMATION
  Report Type: 
  Country: None (occurrence: None)
  Receive Date: 20050406
  Receipt Date: 20050325
  Transmission Date: 20051028
  Serious: Yes (Hospitalization, Other)
  Sender: FDA-Public Use
  Company Number: KII-2005-0015651

PATIENT
  Age: 32 Year
  Sex: Male

DRUGS (4)
  1. OXYCONTIN [Suspect]
     Dosage: ORAL
     Route: 048
  2. DIPHENHYDRAMINE HCL [Suspect]
     Dosage: ORAL
     Route: 048
  3. ANTIHISTAMINES FOR SYSTEMIC USE [Suspect]
     Dosage: ORAL
     Route: 048
  4. HYDROGEN PEROXIDE (HYDROGEN PEROXIDE) [Suspect]
     Dosage: ORAL
     Route: 048

REACTIONS (18)
  - AGITATION [None]
  - BACK PAIN [None]
  - BLOOD BILIRUBIN INCREASED [None]
  - BLOOD UREA INCREASED [None]
  - CHEST PAIN [None]
  - CONFUSIONAL STATE [None]
  - DEPERSONALISATION [None]
  - DISORIENTATION [None]
  - EXTRASYSTOLES [None]
  - FEAR [None]
  - MENTAL STATUS CHANGES [None]
  - MUCOSAL DRYNESS [None]
  - OVERDOSE [None]
  - POLYSUBSTANCE ABUSE [None]
  - TACHYCARDIA [None]
  - THINKING ABNORMAL [None]
  - URINE KETONE BODY PRESENT [None]
  - VOMITING [None]
